FAERS Safety Report 13312908 (Version 3)
Quarter: 2018Q2

REPORT INFORMATION
  Report Type: Report from Study
  Country: DE (occurrence: DE)
  Receive Date: 20170309
  Receipt Date: 20180504
  Transmission Date: 20180711
  Serious: Yes (Hospitalization, Other)
  Sender: FDA-Public Use
  Company Number: DE-INCYTE CORPORATION-2017IN000258

PATIENT

DRUGS (6)
  1. VITAMIN D [Concomitant]
     Active Substance: CHOLECALCIFEROL
     Indication: VITAMIN D DEFICIENCY
     Dosage: 20.000 OT, QD
     Route: 048
     Dates: start: 20160201
  2. JAKAVI [Suspect]
     Active Substance: RUXOLITINIB
     Indication: MYELOFIBROSIS
     Dosage: 30 MG, BID
     Route: 048
     Dates: start: 20120306, end: 20160817
  3. JAKAVI [Suspect]
     Active Substance: RUXOLITINIB
     Dosage: REDUCED DOSE
     Route: 048
     Dates: start: 20161209
  4. IBUPROFEN. [Concomitant]
     Active Substance: IBUPROFEN
     Indication: HEADACHE
     Dosage: 400 MG, PRN
     Route: 048
     Dates: start: 1992
  5. JAKAVI [Suspect]
     Active Substance: RUXOLITINIB
     Indication: POLYCYTHAEMIA VERA
     Dosage: 30 MG, BID
     Route: 048
     Dates: start: 20140820, end: 20161201
  6. PANTOZOL [Concomitant]
     Active Substance: PANTOPRAZOLE SODIUM
     Indication: HIATUS HERNIA
     Dosage: 40 MG, QD
     Route: 048
     Dates: start: 2008

REACTIONS (3)
  - Invasive ductal breast carcinoma [Unknown]
  - Second primary malignancy [Unknown]
  - Metastases to lung [Recovered/Resolved]

NARRATIVE: CASE EVENT DATE: 20140516
